FAERS Safety Report 10726212 (Version 2)
Quarter: 2015Q1

REPORT INFORMATION
  Report Type: Spontaneous
  Country: CH (occurrence: CH)
  Receive Date: 20150121
  Receipt Date: 20150123
  Transmission Date: 20150721
  Serious: Yes (Hospitalization)
  Sender: FDA-Public Use
  Company Number: PHHY2015CH004669

PATIENT
  Age: 34 Year
  Sex: Female

DRUGS (5)
  1. AMOXICILLIN AND CLAVULANATE POTASSIUM [Concomitant]
     Active Substance: AMOXICILLIN\CLAVULANATE POTASSIUM
     Indication: PROPHYLAXIS
     Dosage: 1 G, UNK
     Route: 048
     Dates: start: 2014
  2. XARELTO [Concomitant]
     Active Substance: RIVAROXABAN
     Indication: PROTEUS SYNDROME
     Dosage: 10 MG, UNK
     Route: 048
     Dates: start: 2014
  3. LYRICA [Concomitant]
     Active Substance: PREGABALIN
     Indication: NEURALGIA
     Dosage: 150 MG, BID
     Route: 048
     Dates: start: 2012
  4. PANTOPRAZOLE [Concomitant]
     Active Substance: PANTOPRAZOLE SODIUM
     Indication: PRODUCT USED FOR UNKNOWN INDICATION
     Route: 065
  5. GILENYA [Suspect]
     Active Substance: FINGOLIMOD HYDROCHLORIDE
     Indication: RELAPSING-REMITTING MULTIPLE SCLEROSIS
     Dosage: 0.5 MG, QD
     Route: 048
     Dates: start: 2010

REACTIONS (3)
  - Skin lesion [Recovered/Resolved]
  - Lymphopenia [Unknown]
  - Sepsis [Recovered/Resolved]
